FAERS Safety Report 7020373-3 (Version None)
Quarter: 2010Q3

REPORT INFORMATION
  Report Type: 
  Country: None (occurrence: None)
  Receive Date: 20100927
  Receipt Date: 20100910
  Transmission Date: 20110219
  Serious: Yes (Hospitalization)
  Sender: FDA-Public Use
  Company Number: AE 2010-269

PATIENT
  Sex: Male

DRUGS (1)
  1. FAZACLO ODT [Suspect]
     Dosage: 200MG - 650MG DAILY PO
     Route: 048
     Dates: start: 20091202, end: 20100817

REACTIONS (1)
  - SUICIDAL IDEATION [None]
